FAERS Safety Report 8265437 (Version 2)
Quarter: 2015Q3

REPORT INFORMATION
  Report Type: Spontaneous
  Country: None (occurrence: US)
  Receive Date: 20111128
  Receipt Date: 20150928
  Transmission Date: 20151125
  Serious: Yes (Death, Hospitalization, Other)
  Sender: FDA-Public Use
  Company Number: US-TEVA-310797USA

PATIENT
  Age: 53 Year
  Sex: Male

DRUGS (8)
  1. FLUOXETINE [Concomitant]
     Active Substance: FLUOXETINE\FLUOXETINE HYDROCHLORIDE
  2. DILTIAZEM [Suspect]
     Active Substance: DILTIAZEM
     Route: 048
  3. WARFARIN [Concomitant]
     Active Substance: WARFARIN
  4. FAT EMULSION NOS [Suspect]
     Active Substance: EGG PHOSPHOLIPIDS\SAFFLOWER OIL\SOYBEAN OIL
     Dosage: 150ML OF 20% LIPID EMULSION
     Route: 042
  5. INSULIN [Interacting]
     Active Substance: INSULIN NOS
     Route: 065
  6. PROPRANOLOL [Suspect]
     Active Substance: PROPRANOLOL\PROPRANOLOL HYDROCHLORIDE
     Route: 048
  7. LORAZEPAM. [Concomitant]
     Active Substance: LORAZEPAM
  8. OLMESARTAN MEDOXOMIL. [Concomitant]
     Active Substance: OLMESARTAN MEDOXOMIL

REACTIONS (6)
  - Overdose [Fatal]
  - Cardiogenic shock [Fatal]
  - Respiratory failure [Unknown]
  - Multi-organ failure [Fatal]
  - Drug interaction [Unknown]
  - Cardiac arrest [Fatal]
